FAERS Safety Report 8191186-4 (Version None)
Quarter: 2012Q1

REPORT INFORMATION
  Report Type: 
  Country: None (occurrence: None)
  Receive Date: 20120307
  Receipt Date: 20120305
  Transmission Date: 20120608
  Serious: No
  Sender: FDA-Public Use
  Company Number: US-PFIZER INC-2012017190

PATIENT
  Sex: Female
  Weight: 58.05 kg

DRUGS (19)
  1. FERATAB [Concomitant]
     Dosage: UNK
  2. HYDRALAZINE [Concomitant]
     Dosage: UNK
  3. NEURONTIN [Suspect]
     Indication: NEURALGIA
     Dosage: 100 MG, 1X/DAY
     Route: 048
     Dates: start: 20120117, end: 20120119
  4. NEURONTIN [Suspect]
     Dosage: 300 MG, (QHS)
     Route: 048
     Dates: start: 20120116, end: 20120118
  5. OXYTOCIN [Concomitant]
     Dosage: UNK
  6. STARLIX [Concomitant]
     Dosage: UNK
  7. DETROL LA [Concomitant]
     Dosage: UNK
  8. NEURONTIN [Suspect]
     Indication: PAIN
     Dosage: 100 MG, 1X/DAY
     Route: 048
     Dates: start: 20120104, end: 20120116
  9. ZOCOR [Concomitant]
     Dosage: UNK
  10. LEVOTHYROXINE [Concomitant]
     Dosage: UNK
  11. CALCIUM CARBONATE [Concomitant]
     Dosage: UNK
  12. COLACE [Concomitant]
     Dosage: UNK
  13. LOPRESSOR [Concomitant]
     Dosage: UNK
  14. CELEXA [Concomitant]
     Dosage: UNK
  15. NEURONTIN [Suspect]
     Indication: FIBROMYALGIA
     Dosage: 300 MG, 1X/DAY
     Route: 048
     Dates: start: 20120116, end: 20120117
  16. OXYCONTIN [Concomitant]
     Dosage: UNK
  17. ASCORBIC ACID [Concomitant]
     Dosage: UNK
  18. INSULIN GLARGINE [Concomitant]
     Dosage: UNK
  19. LASIX [Concomitant]
     Dosage: UNK

REACTIONS (5)
  - FATIGUE [None]
  - DRUG INEFFECTIVE [None]
  - SOMNOLENCE [None]
  - PAIN [None]
  - HYPERSOMNIA [None]
